FAERS Safety Report 25811584 (Version 2)
Quarter: 2025Q4

REPORT INFORMATION
  Report Type: Report from Study
  Country: US (occurrence: US)
  Receive Date: 20250917
  Receipt Date: 20251010
  Transmission Date: 20260118
  Serious: Yes (Hospitalization, Other)
  Sender: ABBVIE
  Company Number: US-ABBVIE-6458965

PATIENT
  Age: 67 Year
  Sex: Male

DRUGS (1)
  1. SKYRIZI [Suspect]
     Active Substance: RISANKIZUMAB-RZAA
     Indication: Psoriasis
     Dosage: LAST ADMIN DATE: 2025
     Route: 058
     Dates: start: 20250612

REACTIONS (6)
  - Seizure [Not Recovered/Not Resolved]
  - Asthenia [Unknown]
  - Pancreatic carcinoma [Not Recovered/Not Resolved]
  - Blood electrolytes decreased [Unknown]
  - Urinary tract infection [Unknown]
  - Clostridium difficile infection [Unknown]

NARRATIVE: CASE EVENT DATE: 20250101
